FAERS Safety Report 15786656 (Version 6)
Quarter: 2019Q2

REPORT INFORMATION
  Report Type: Report from Study
  Country: CA (occurrence: CA)
  Receive Date: 20190103
  Receipt Date: 20190430
  Transmission Date: 20190711
  Serious: No
  Sender: FDA-Public Use
  Company Number: CA-JNJFOC-20190100070

PATIENT
  Age: 50 Year
  Sex: Female
  Weight: 84.2 kg

DRUGS (2)
  1. STELARA [Suspect]
     Active Substance: USTEKINUMAB
     Indication: CROHN^S DISEASE
     Dosage: STRENGTH = 90 MG
     Route: 058
     Dates: start: 20180716
  2. STELARA [Suspect]
     Active Substance: USTEKINUMAB
     Indication: CROHN^S DISEASE
     Dosage: STRENGTH = 90 MG
     Route: 058
     Dates: start: 20190409

REACTIONS (10)
  - Lethargy [Unknown]
  - Product use issue [Unknown]
  - Inflammation [Unknown]
  - Therapeutic product effect decreased [Unknown]
  - Eating disorder [Unknown]
  - Off label use [Unknown]
  - Fatigue [Unknown]
  - Diarrhoea [Recovering/Resolving]
  - Blood magnesium decreased [Recovered/Resolved]
  - Ammonia abnormal [Unknown]

NARRATIVE: CASE EVENT DATE: 20181221
